FAERS Safety Report 7289427-0 (Version None)
Quarter: 2011Q1

REPORT INFORMATION
  Report Type: 
  Country: None (occurrence: None)
  Receive Date: 20110211
  Receipt Date: 20110209
  Transmission Date: 20110831
  Serious: Yes (Other)
  Sender: FDA-Public Use
  Company Number: US-ABBOTT-10P-163-0684090-00

PATIENT
  Sex: Female
  Weight: 90.8 kg

DRUGS (16)
  1. HUMIRA [Suspect]
     Indication: RHEUMATOID ARTHRITIS
     Dates: start: 20090101, end: 20100901
  2. RAMIPRIL [Concomitant]
     Indication: HYPERTENSION
  3. CLONAZEPAM [Concomitant]
     Indication: SLEEP DISORDER THERAPY
  4. GABAPENTIN [Concomitant]
     Indication: ARTHRALGIA
  5. TRAVATAN [Concomitant]
     Indication: GLAUCOMA
     Route: 047
  6. MELOXICAM [Concomitant]
     Indication: ARTHRALGIA
  7. PROAIR HFA [Concomitant]
     Indication: ASTHMA
  8. NEXIUM [Concomitant]
     Indication: GASTROOESOPHAGEAL REFLUX DISEASE
  9. VICODIN [Concomitant]
     Indication: ARTHRALGIA
  10. MULTIVITAMIN [Concomitant]
     Indication: VITAMIN SUPPLEMENTATION
  11. ASPIRIN [Concomitant]
     Indication: CARDIOVASCULAR EVENT PROPHYLAXIS
  12. EFFEXOR [Concomitant]
     Indication: DEPRESSION
  13. METHOTREXATE [Concomitant]
     Indication: RHEUMATOID ARTHRITIS
  14. UNKNOWN ANTIBIOTICS [Suspect]
     Indication: STAPHYLOCOCCAL INFECTION
     Dates: start: 20100901, end: 20100901
  15. EFFEXOR [Concomitant]
     Indication: FIBROMYALGIA
  16. ACTONEL [Concomitant]
     Indication: OSTEOPOROSIS

REACTIONS (8)
  - STAPHYLOCOCCAL INFECTION [None]
  - MUSCULAR WEAKNESS [None]
  - SYNOVITIS [None]
  - INFECTION [None]
  - ARTHRALGIA [None]
  - GAIT DISTURBANCE [None]
  - LIGAMENT RUPTURE [None]
  - PAIN [None]
